FAERS Safety Report 7507707-8 (Version None)
Quarter: 2011Q2

REPORT INFORMATION
  Report Type: 
  Country: None (occurrence: None)
  Receive Date: 20110527
  Receipt Date: 20110519
  Transmission Date: 20111010
  Serious: No
  Sender: FDA-Public Use
  Company Number: US-BIOGENIDEC-2010BI025498

PATIENT
  Age: 30 Year
  Sex: Female

DRUGS (1)
  1. TYSABRI [Suspect]
     Indication: MULTIPLE SCLEROSIS
     Route: 042
     Dates: start: 20100720

REACTIONS (10)
  - DISTURBANCE IN ATTENTION [None]
  - MEMORY IMPAIRMENT [None]
  - FATIGUE [None]
  - HEADACHE [None]
  - NAUSEA [None]
  - DIZZINESS [None]
  - DECREASED APPETITE [None]
  - INCOHERENT [None]
  - VOMITING [None]
  - CHEST DISCOMFORT [None]
